FAERS Safety Report 5152548-2 (Version None)
Quarter: 2006Q4

REPORT INFORMATION
  Report Type: 
  Country: None (occurrence: None)
  Receive Date: 20061116
  Receipt Date: 20061107
  Transmission Date: 20070319
  Serious: Yes (Death)
  Sender: FDA-Public Use
  Company Number: US-ROXANE LABORATORIES, INC-2006-DE-05872GD

PATIENT
  Age: 48 Year
  Sex: Male
  Weight: 92 kg

DRUGS (4)
  1. MORPHINE [Suspect]
  2. CYMBALTA [Suspect]
  3. ATOMOXETINE [Suspect]
  4. DIPHENHYDRAMINE HCL [Suspect]

REACTIONS (4)
  - ACCIDENTAL DEATH [None]
  - ACCIDENTAL POISONING [None]
  - DRUG TOXICITY [None]
  - MOUTH HAEMORRHAGE [None]
